FAERS Safety Report 6544634-7 (Version None)
Quarter: 2010Q1

REPORT INFORMATION
  Report Type: 
  Country: None (occurrence: None)
  Receive Date: 20100121
  Receipt Date: 20100114
  Transmission Date: 20100710
  Serious: Yes (Hospitalization)
  Sender: FDA-Public Use
  Company Number: PHHO2009DK10688

PATIENT
  Sex: Female

DRUGS (1)
  1. CERTICAN [Suspect]
     Indication: TRANSPLANT
     Dosage: UNK
     Dates: start: 20090821, end: 20090921

REACTIONS (4)
  - ABDOMINAL DISTENSION [None]
  - LYMPHOCELE [None]
  - OEDEMA PERIPHERAL [None]
  - SURGERY [None]
